FAERS Safety Report 6551970-7 (Version None)
Quarter: 2010Q1

REPORT INFORMATION
  Report Type: 
  Country: None (occurrence: None)
  Receive Date: 20100126
  Receipt Date: 20100114
  Transmission Date: 20100710
  Serious: No
  Sender: FDA-Public Use
  Company Number: US-ELI_LILLY_AND_COMPANY-US201001004409

PATIENT
  Sex: Female

DRUGS (8)
  1. CYMBALTA [Suspect]
     Indication: PAIN
     Dosage: 60 MG, DAILY (1/D)
     Dates: start: 20080301
  2. FORTEO [Suspect]
     Indication: OSTEOPOROSIS
     Dosage: 20 UG, DAILY (1/D)
     Dates: start: 20090520
  3. SIMVASTATIN [Concomitant]
     Dosage: 5 MG, DAILY (1/D)
  4. VITAMIN D3 [Concomitant]
     Dosage: 1000 IU, 2/D
  5. AXID [Concomitant]
     Dosage: 150 MG, DAILY (1/D)
  6. TRAMADOL HCL [Concomitant]
     Dosage: 50 MG, OTHER
  7. CAL-MAG /01623301/ [Concomitant]
     Indication: CONSTIPATION
  8. AMITIZA [Concomitant]
     Indication: CONSTIPATION

REACTIONS (4)
  - BLOOD ALKALINE PHOSPHATASE INCREASED [None]
  - CATARACT [None]
  - OSTEOPOROSIS [None]
  - VISION BLURRED [None]
